FAERS Safety Report 6593983-5 (Version None)
Quarter: 2010Q1

REPORT INFORMATION
  Report Type: 
  Country: None (occurrence: None)
  Receive Date: 20100222
  Receipt Date: 20100217
  Transmission Date: 20100710
  Serious: Yes (Life-Threatening)
  Sender: FDA-Public Use
  Company Number: ES-TEVA-223338ISR

PATIENT
  Age: 58 Year
  Sex: Male

DRUGS (6)
  1. CARBOPLATIN [Suspect]
     Indication: NON-SMALL CELL LUNG CANCER
     Dosage: AUC 6
  2. PEMETREXED [Suspect]
     Indication: NON-SMALL CELL LUNG CANCER
  3. CYANOCOBALAMIN [Suspect]
     Indication: NON-SMALL CELL LUNG CANCER
     Route: 030
  4. FOLIC ACID W/VITAMIN B12 [Suspect]
     Indication: NON-SMALL CELL LUNG CANCER
     Dosage: 4MG B12 WITH 0.4MG FOLIC ACID
  5. FOLIC ACID W/VITAMIN B12 [Suspect]
     Dosage: UP TO 5 TIMES HIGHER DOSES OF B12 WITH FOLIC ACID
  6. DEXAMETHASONE [Concomitant]
     Dosage: BEFORE EVERY INFUSION AND FOLLOWING TREATMENT

REACTIONS (1)
  - TOXIC EPIDERMAL NECROLYSIS [None]
